FAERS Safety Report 14369447 (Version 1)
Quarter: 2018Q1

REPORT INFORMATION
  Report Type: Report from Study
  Country: US (occurrence: US)
  Receive Date: 20180110
  Receipt Date: 20180110
  Transmission Date: 20180509
  Serious: Yes (Hospitalization)
  Sender: FDA-Public Use
  Company Number: US-VIFOR (INTERNATIONAL) INC.-VIT-2018-00072

PATIENT
  Age: 53 Year
  Sex: Female

DRUGS (13)
  1. VENOFER [Concomitant]
     Active Substance: IRON SUCROSE
     Indication: IRON DEFICIENCY ANAEMIA
     Route: 042
  2. DOCUSATE SODIUM. [Concomitant]
     Active Substance: DOCUSATE SODIUM
  3. EPOGEN [Concomitant]
     Active Substance: ERYTHROPOIETIN
  4. MINOXIDIL. [Concomitant]
     Active Substance: MINOXIDIL
  5. VENOFER [Concomitant]
     Active Substance: IRON SUCROSE
     Indication: IRON DEFICIENCY
  6. VELTASSA [Suspect]
     Active Substance: PATIROMER
     Indication: HYPERKALAEMIA
     Dates: start: 201612
  7. DIOVAN [Concomitant]
     Active Substance: VALSARTAN
  8. FOLIC ACID. [Concomitant]
     Active Substance: FOLIC ACID
  9. NEXIUM [Concomitant]
     Active Substance: ESOMEPRAZOLE MAGNESIUM
  10. RENAL VIT [Concomitant]
  11. SENSIPAR [Concomitant]
     Active Substance: CINACALCET HYDROCHLORIDE
  12. CLONIDINE. [Concomitant]
     Active Substance: CLONIDINE
  13. HECTOROL [Concomitant]
     Active Substance: DOXERCALCIFEROL

REACTIONS (1)
  - Hospitalisation [Not Recovered/Not Resolved]

NARRATIVE: CASE EVENT DATE: 201712
